FAERS Safety Report 6520597-5 (Version None)
Quarter: 2009Q4

REPORT INFORMATION
  Report Type: 
  Country: None (occurrence: None)
  Receive Date: 20091229
  Receipt Date: 20091221
  Transmission Date: 20100525
  Serious: Yes (Hospitalization)
  Sender: FDA-Public Use
  Company Number: FR-BRISTOL-MYERS SQUIBB COMPANY-14905434

PATIENT
  Age: 71 Year
  Sex: Male

DRUGS (4)
  1. REYATAZ [Suspect]
     Indication: HIV INFECTION
     Route: 048
     Dates: start: 20060322, end: 20090610
  2. KIVEXA [Suspect]
     Indication: HIV INFECTION
     Dosage: 1 D.F=600MG/300MG TABLET
     Route: 048
     Dates: start: 20060322, end: 20090610
  3. INVIRASE [Suspect]
     Indication: HIV INFECTION
     Dosage: DOSAGE FORM: TABLET
     Route: 048
     Dates: start: 20060322, end: 20090610
  4. NORVIR [Suspect]
     Indication: HIV INFECTION
     Dates: start: 20060322

REACTIONS (2)
  - NEPHROLITHIASIS [None]
  - RENAL IMPAIRMENT [None]
